FAERS Safety Report 14260940 (Version 1)
Quarter: 2017Q4

REPORT INFORMATION
  Report Type: Report from Study
  Country: US (occurrence: US)
  Receive Date: 20171207
  Receipt Date: 20171207
  Transmission Date: 20180321
  Serious: No
  Sender: FDA-Public Use
  Company Number: US-AMGEN-USASL2017161880

PATIENT
  Age: 64 Year
  Sex: Female

DRUGS (1)
  1. BLINCYTO [Suspect]
     Active Substance: BLINATUMOMAB
     Indication: ACUTE LYMPHOCYTIC LEUKAEMIA
     Dosage: 9 MCG, QD (28 DAYS)
     Route: 065
     Dates: end: 201710

REACTIONS (2)
  - Drug intolerance [Unknown]
  - Biopsy bone marrow abnormal [Unknown]

NARRATIVE: CASE EVENT DATE: 20171016
